FAERS Safety Report 23343829 (Version 1)
Quarter: 2023Q4

REPORT INFORMATION
  Report Type: Spontaneous
  Country: US (occurrence: US)
  Receive Date: 20231227
  Receipt Date: 20231227
  Transmission Date: 20240109
  Serious: No
  Sender: FDA-Public Use
  Company Number: US-PFIZER INC-202300448471

PATIENT
  Age: 45 Year
  Sex: Female

DRUGS (4)
  1. IBRANCE [Suspect]
     Active Substance: PALBOCICLIB
     Dosage: 125 MG, CYCLIC (DAILY FOR 3 WEEKS, FOLLOWED BY 1 WEEK REST)
     Route: 048
     Dates: start: 20220906
  2. LETROZOLE [Concomitant]
     Active Substance: LETROZOLE
  3. XGEVA [Concomitant]
     Active Substance: DENOSUMAB
  4. GOSERELIN [Concomitant]
     Active Substance: GOSERELIN

REACTIONS (4)
  - Fatigue [Not Recovered/Not Resolved]
  - Headache [Not Recovered/Not Resolved]
  - Alopecia [Not Recovered/Not Resolved]
  - Pain [Not Recovered/Not Resolved]
